FAERS Safety Report 4536901-3 (Version None)
Quarter: 2004Q4

REPORT INFORMATION
  Report Type: 
  Country: None (occurrence: None)
  Receive Date: 20041220
  Receipt Date: 20041213
  Transmission Date: 20050328
  Serious: Yes (Life-Threatening, Hospitalization)
  Sender: FDA-Public Use
  Company Number: 2004UW23710

PATIENT
  Age: 55 Year
  Sex: Male
  Weight: 72 kg

DRUGS (9)
  1. IRESSA [Suspect]
     Indication: SQUAMOUS CELL CARCINOMA
     Dosage: 250 MG PO
     Route: 048
     Dates: start: 20040830, end: 20041026
  2. IRESSA [Suspect]
     Indication: SQUAMOUS CELL CARCINOMA
     Dosage: 250 MG QD PO
     Route: 048
     Dates: start: 20041118
  3. HYDREA [Concomitant]
  4. XANAX [Concomitant]
  5. LIPITOR [Concomitant]
  6. ZOLOFT [Concomitant]
  7. PREVACID [Concomitant]
  8. CARAFATE [Concomitant]
  9. REGLAN /USA/ [Concomitant]

REACTIONS (17)
  - ANAEMIA [None]
  - ASPIRATION [None]
  - BLOOD CULTURE POSITIVE [None]
  - COAGULOPATHY [None]
  - CULTURE POSITIVE [None]
  - ENCEPHALOPATHY [None]
  - INFECTION [None]
  - INTERNATIONAL NORMALISED RATIO INCREASED [None]
  - KLEBSIELLA INFECTION [None]
  - LUNG INFILTRATION [None]
  - PNEUMONIA [None]
  - RESPIRATORY FAILURE [None]
  - SEPSIS SYNDROME [None]
  - SERRATIA INFECTION [None]
  - STAPHYLOCOCCAL INFECTION [None]
  - STENOTROPHOMONAS INFECTION [None]
  - URINE OUTPUT DECREASED [None]
